FAERS Safety Report 5714513-3 (Version None)
Quarter: 2008Q2

REPORT INFORMATION
  Report Type: 
  Country: None (occurrence: None)
  Receive Date: 20080423
  Receipt Date: 20080414
  Transmission Date: 20081010
  Serious: Yes (Other)
  Sender: FDA-Public Use
  Company Number: ES-AVENTIS-200811632EU

PATIENT
  Age: 80 Year
  Sex: Female

DRUGS (1)
  1. SEGURIL                            /00032601/ [Suspect]
     Indication: DRUG USE FOR UNKNOWN INDICATION
     Dosage: DOSE: UNK
     Route: 042
     Dates: start: 20061203, end: 20061218

REACTIONS (2)
  - HYPERNATRAEMIA [None]
  - RENAL FAILURE [None]
